FAERS Safety Report 9915642 (Version 1)
Quarter: 2014Q1

REPORT INFORMATION
  Report Type: Spontaneous
  Country: GB (occurrence: None)
  Receive Date: 20140218
  Receipt Date: 20140218
  Transmission Date: 20141002
  Serious: Yes (Hospitalization)
  Sender: FDA-Public Use
  Company Number: AUR-APL-2014-01528

PATIENT
  Age: 85 Year
  Sex: Male
  Weight: 87 kg

DRUGS (8)
  1. CIPROFLOXACIN (CIPROFLOXACIN) [Suspect]
     Indication: ANTIBIOTIC PROPHYLAXIS
     Dosage: 500MG (250 MG, 2 IN 1 D), ORAL
     Route: 048
     Dates: start: 20140103
  2. CIPROFLOXACIN (CIPROFLOXACIN) [Suspect]
     Indication: URINARY TRACT INFECTION
     Dosage: 500MG (250 MG, 2 IN 1 D), ORAL
     Route: 048
     Dates: start: 20140103
  3. FINASTERIDE (FINASTERIDE) [Suspect]
     Indication: BENIGN PROSTATIC HYPERPLASIA
     Dosage: 5 MG (5 MG, (5 MG 1 IN 1 D), ORAL
     Route: 048
     Dates: start: 20140103, end: 20140106
  4. DOXAZOSIN (DOXAZOSIN) [Concomitant]
  5. GLICLAZIDE (GLICAZIDE) [Concomitant]
  6. LOSARTAN (LOSARTAN) [Concomitant]
  7. NOVOMIX (NOVOMIX) [Concomitant]
  8. PRAVASTATIN (PRAVASTATIN) [Concomitant]

REACTIONS (1)
  - Rash [None]
